FAERS Safety Report 5525170-3 (Version None)
Quarter: 2007Q4

REPORT INFORMATION
  Report Type: 
  Country: None (occurrence: None)
  Receive Date: 20071119
  Receipt Date: 20071109
  Transmission Date: 20080405
  Serious: Yes (Hospitalization, Other)
  Sender: FDA-Public Use
  Company Number: 2007SP019642

PATIENT
  Age: 75 Year
  Sex: Male
  Weight: 90 kg

DRUGS (9)
  1. TEMODAL [Suspect]
     Indication: GLIOBLASTOMA
     Dosage: 210 MG; QD; PO
     Route: 048
     Dates: start: 20070702, end: 20070718
  2. TEMODAL [Suspect]
     Indication: GLIOBLASTOMA
     Dosage: 210 MG; QD; PO
     Route: 048
     Dates: start: 20070801
  3. STAPHYLEX [Concomitant]
  4. UNACID [Concomitant]
  5. DIOVAN [Concomitant]
  6. DEXAMETHASONE [Concomitant]
  7. NORVASC [Concomitant]
  8. PANTOPRAZOLE SODIUM [Concomitant]
  9. LAMICTAL [Concomitant]

REACTIONS (3)
  - BRONCHITIS BACTERIAL [None]
  - CANDIDA SEROLOGY POSITIVE [None]
  - PNEUMONIA PRIMARY ATYPICAL [None]
